FAERS Safety Report 5946936-1 (Version None)
Quarter: 2008Q4

REPORT INFORMATION
  Report Type: 
  Country: None (occurrence: None)
  Receive Date: 20081110
  Receipt Date: 20081105
  Transmission Date: 20090506
  Serious: Yes (Death)
  Sender: FDA-Public Use
  Company Number: BE-ASTRAZENECA-2008AC02844

PATIENT
  Age: 4602 Day
  Sex: Male
  Weight: 55 kg

DRUGS (7)
  1. DIPRIVAN [Suspect]
     Indication: INJURY
     Route: 042
     Dates: start: 20080905, end: 20080910
  2. LEVOPHED [Concomitant]
  3. SOLU-MEDROL [Concomitant]
  4. DEPAKENE [Concomitant]
  5. AUGMENTIN '125' [Concomitant]
  6. LYSOMUCIL [Concomitant]
  7. ZANTAC [Concomitant]

REACTIONS (2)
  - OVERDOSE [None]
  - PROPOFOL INFUSION SYNDROME [None]
